FAERS Safety Report 14362283 (Version 1)
Quarter: 2018Q1

REPORT INFORMATION
  Report Type: Spontaneous
  Country: US (occurrence: US)
  Receive Date: 20180108
  Receipt Date: 20180108
  Transmission Date: 20180509
  Serious: No
  Sender: FDA-Public Use
  Company Number: US-TEVA-2017-US-840054

PATIENT
  Sex: Female

DRUGS (7)
  1. POLYVINYL ALCOHOL [Concomitant]
     Active Substance: POLYVINYL ALCOHOL
     Dosage: APPLY 1 DROP TO EACH EYE
     Route: 047
  2. VITAMIN D [Concomitant]
     Active Substance: CHOLECALCIFEROL
     Dosage: 2000 UNITS
     Route: 048
  3. CLARITIN [Concomitant]
     Active Substance: LORATADINE
     Route: 048
  4. BACLOFEN. [Suspect]
     Active Substance: BACLOFEN
  5. CALCIUM + D [Concomitant]
     Active Substance: CALCIUM\VITAMIN D
     Route: 048
  6. ONE A DAY WOMENS 50 PLUS [Concomitant]
     Route: 048
  7. SENNA [Concomitant]
     Active Substance: SENNA LEAF\SENNOSIDES\SENNOSIDES A AND B
     Route: 048

REACTIONS (3)
  - Aphasia [Unknown]
  - Somnolence [Unknown]
  - Drug hypersensitivity [Unknown]
